FAERS Safety Report 21438980 (Version 1)
Quarter: 2022Q4

REPORT INFORMATION
  Report Type: Spontaneous
  Country: US (occurrence: None)
  Receive Date: 20221007
  Receipt Date: 20221007
  Transmission Date: 20230112
  Serious: No
  Sender: FDA-Public Use
  Company Number: None

PATIENT
  Sex: Female
  Weight: 108 kg

DRUGS (12)
  1. IBRANCE [Suspect]
     Active Substance: PALBOCICLIB
     Indication: Breast cancer female
     Dosage: FREQUENCY : DAILY;?OTHER ROUTE : 21 DAYS ON, 7 D OFF;?
     Route: 050
  2. ACETAMINOPHEN [Concomitant]
     Active Substance: ACETAMINOPHEN
  3. AMLODIPINE [Concomitant]
     Active Substance: AMLODIPINE BESYLATE
  4. CALCIUM CARBONATE\VITAMIN D [Concomitant]
     Active Substance: CALCIUM CARBONATE\VITAMIN D
  5. VITAMINS [Concomitant]
     Active Substance: VITAMINS
  6. COLCHICINE [Concomitant]
     Active Substance: COLCHICINE
  7. FLUOXETINE [Concomitant]
     Active Substance: FLUOXETINE HYDROCHLORIDE
  8. LETROZOLE [Concomitant]
     Active Substance: LETROZOLE
  9. LEVOTHYROXINE [Concomitant]
     Active Substance: LEVOTHYROXINE
  10. PRAVASTATIN [Concomitant]
     Active Substance: PRAVASTATIN
  11. RECLAST [Concomitant]
     Active Substance: ZOLEDRONIC ACID
  12. VALSARTAN [Concomitant]
     Active Substance: VALSARTAN

REACTIONS (1)
  - Disease progression [None]
